FAERS Safety Report 16965763 (Version 1)
Quarter: 2019Q4

REPORT INFORMATION
  Report Type: Spontaneous
  Country: CA (occurrence: CA)
  Receive Date: 20191028
  Receipt Date: 20191028
  Transmission Date: 20200122
  Serious: Yes (Other)
  Sender: FDA-Public Use
  Company Number: CA-PFIZER INC-2019461971

PATIENT
  Age: 18 Year
  Sex: Female
  Weight: 68.27 kg

DRUGS (1)
  1. ALESSE 28 [Suspect]
     Active Substance: ETHINYL ESTRADIOL\LEVONORGESTREL
     Indication: CONTRACEPTION
     Dosage: UNK, ONCE A DAY
     Route: 048

REACTIONS (8)
  - Abdominal pain [Unknown]
  - Erythema [Unknown]
  - Pain in extremity [Unknown]
  - Abdominal discomfort [Unknown]
  - Raynaud^s phenomenon [Unknown]
  - Skin discolouration [Unknown]
  - Head discomfort [Unknown]
  - Headache [Unknown]
